FAERS Safety Report 8858002 (Version 1)
Quarter: 2012Q4

REPORT INFORMATION
  Report Type: 
  Country: US (occurrence: US)
  Receive Date: 20121024
  Receipt Date: 20121024
  Transmission Date: 20130627
  Serious: No
  Sender: FDA-Public Use
  Company Number: US-AMGEN-USASP2011065499

PATIENT
  Age: 50 Year
  Sex: Female
  Weight: 68.03 kg

DRUGS (10)
  1. ENBREL [Suspect]
     Indication: PSORIATIC ARTHROPATHY
     Dosage: 50 mg, 2 times/wk
     Route: 058
     Dates: end: 20120209
  2. LAMICTAL [Concomitant]
     Dosage: 200 mg, UNK
     Route: 048
  3. WELLBUTRIN XL [Concomitant]
     Dosage: 150 mg, UNK
     Route: 048
  4. PROVIGIL [Concomitant]
     Dosage: 200 mg, UNK
     Route: 048
  5. OXYCONTIN [Concomitant]
     Dosage: 10 mg, UNK
     Route: 048
  6. LORTAB [Concomitant]
     Dosage: 5 UNK, UNK
  7. LYRICA [Concomitant]
     Dosage: 100 mg, UNK
     Route: 048
  8. MUL-TAB [Concomitant]
  9. VIT C [Concomitant]
     Dosage: 1000 mg, UNK
  10. ADALIMUMAB [Concomitant]

REACTIONS (5)
  - Therapeutic response decreased [Unknown]
  - Injection site reaction [Unknown]
  - Injection site swelling [Unknown]
  - Injection site erythema [Unknown]
  - Injection site pruritus [Unknown]
